FAERS Safety Report 6331089-0 (Version None)
Quarter: 2009Q3

REPORT INFORMATION
  Report Type: 
  Country: None (occurrence: None)
  Receive Date: 20090827
  Receipt Date: 20090818
  Transmission Date: 20100115
  Serious: Yes (Hospitalization)
  Sender: FDA-Public Use
  Company Number: US-ROCHE-636507

PATIENT
  Sex: Female
  Weight: 67.7 kg

DRUGS (19)
  1. CAPECITABINE [Suspect]
     Dosage: FREQUENCY: 1-14 OF 21 DAY CYCLE
     Route: 042
     Dates: start: 20090422
  2. OXALIPLATIN [Suspect]
     Dosage: FREQUENCY: DAY 1 OF 21 DAY CYCLE
     Route: 042
     Dates: start: 20090422
  3. ATIVAN [Concomitant]
  4. COMPAZINE [Concomitant]
  5. CITALOPRAM [Concomitant]
  6. ENALAPRIL MALEATE [Concomitant]
  7. LEVOFLOXACIN [Concomitant]
  8. LIPITOR [Concomitant]
  9. METFORMIN HCL [Concomitant]
     Route: 048
  10. METOPROLOL [Concomitant]
  11. MIRALAX [Concomitant]
  12. MS CONTIN [Concomitant]
  13. NICOTINE [Concomitant]
  14. OXYCODONE [Concomitant]
  15. PANCRELIPASE [Concomitant]
     Dosage: DRUG: PANCREAS MT
  16. REGLAN [Concomitant]
  17. SENNA [Concomitant]
  18. WELLBUTRIN [Concomitant]
  19. ZOFRAN [Concomitant]

REACTIONS (12)
  - ABDOMINAL PAIN [None]
  - BILE DUCT OBSTRUCTION [None]
  - DEEP VEIN THROMBOSIS [None]
  - DIARRHOEA [None]
  - GASTROINTESTINAL OBSTRUCTION [None]
  - MALIGNANT NEOPLASM PROGRESSION [None]
  - METASTASES TO PERITONEUM [None]
  - NAUSEA [None]
  - PULMONARY EMBOLISM [None]
  - SMALL INTESTINAL OBSTRUCTION [None]
  - VENTRICULAR TACHYCARDIA [None]
  - VOMITING [None]
